FAERS Safety Report 11021923 (Version 2)
Quarter: 2015Q2

REPORT INFORMATION
  Report Type: Spontaneous
  Country: IT (occurrence: IT)
  Receive Date: 20150413
  Receipt Date: 20150413
  Transmission Date: 20150821
  Serious: Yes (Other)
  Sender: FDA-Public Use
  Company Number: PHHY2015IT042192

PATIENT
  Age: 75 Year
  Sex: Female

DRUGS (2)
  1. LIDOCAINE. [Concomitant]
     Active Substance: LIDOCAINE
     Indication: OSTEOMYELITIS
     Dosage: 1 ML, UNK
     Route: 014
  2. TRIAMCINOLONE [Suspect]
     Active Substance: TRIAMCINOLONE
     Indication: OSTEOARTHRITIS
     Dosage: 20 MG/ML, UNK
     Route: 065

REACTIONS (4)
  - Rash papular [Unknown]
  - Connective tissue disorder [Unknown]
  - Papule [Unknown]
  - Skin plaque [Unknown]
